FAERS Safety Report 6213112-7 (Version None)
Quarter: 2009Q2

REPORT INFORMATION
  Report Type: 
  Country: None (occurrence: None)
  Receive Date: 20090603
  Receipt Date: 20090527
  Transmission Date: 20091009
  Serious: Yes (Other)
  Sender: FDA-Public Use
  Company Number: B0575283A

PATIENT
  Sex: Male

DRUGS (4)
  1. PAXIL [Suspect]
     Indication: DEPRESSION
     Route: 048
     Dates: start: 20080829
  2. PARIET [Concomitant]
     Dosage: 10MG PER DAY
     Route: 048
     Dates: start: 20040514
  3. DORAL [Concomitant]
     Indication: INSOMNIA
     Dosage: 15MG PER DAY
     Route: 048
     Dates: start: 20040514
  4. TETRAMIDE [Concomitant]
     Indication: DEPRESSION
     Route: 048
     Dates: start: 20080801, end: 20080828

REACTIONS (7)
  - ASPARTATE AMINOTRANSFERASE INCREASED [None]
  - BLOOD CHOLESTEROL INCREASED [None]
  - BLOOD CREATINE PHOSPHOKINASE INCREASED [None]
  - BLOOD LACTATE DEHYDROGENASE INCREASED [None]
  - BLOOD TRIGLYCERIDES INCREASED [None]
  - GLYCOSYLATED HAEMOGLOBIN INCREASED [None]
  - LIVER FUNCTION TEST ABNORMAL [None]
